FAERS Safety Report 18217031 (Version 1)
Quarter: 2020Q3

REPORT INFORMATION
  Report Type: Spontaneous
  Country: US (occurrence: US)
  Receive Date: 20200831
  Receipt Date: 20200831
  Transmission Date: 20201103
  Serious: Yes (Hospitalization, Other)
  Sender: FDA-Public Use
  Company Number: None

PATIENT
  Age: 78 Year
  Sex: Male

DRUGS (1)
  1. FUROSEMIDE (FUROSEMIDE 10MG/ML INJ) [Suspect]
     Active Substance: FUROSEMIDE
     Route: 042
     Dates: start: 20200529, end: 20200610

REACTIONS (3)
  - Rash [None]
  - Swelling [None]
  - Erythema multiforme [None]

NARRATIVE: CASE EVENT DATE: 20200610
